FAERS Safety Report 21863282 (Version 2)
Quarter: 2023Q1

REPORT INFORMATION
  Report Type: Report from Study
  Country: BR (occurrence: BR)
  Receive Date: 20230115
  Receipt Date: 20230119
  Transmission Date: 20230418
  Serious: Yes (Death, Life-Threatening)
  Sender: FDA-Public Use
  Company Number: BR-JNJFOC-20230110912

PATIENT
  Age: 91 Year
  Sex: Female

DRUGS (2)
  1. IMBRUVICA [Suspect]
     Active Substance: IBRUTINIB
     Indication: Cytopenia
     Route: 048
     Dates: start: 20190901
  2. IMBRUVICA [Suspect]
     Active Substance: IBRUTINIB
     Indication: Cytopenia
     Route: 048
     Dates: start: 20191105

REACTIONS (3)
  - Neutropenia [Fatal]
  - Pneumonia [Fatal]
  - COVID-19 [Fatal]

NARRATIVE: CASE EVENT DATE: 20190905
